FAERS Safety Report 10733224 (Version 1)
Quarter: 2015Q1

REPORT INFORMATION
  Report Type: Spontaneous
  Country: AU (occurrence: None)
  Receive Date: 20150120
  Receipt Date: 20150120
  Transmission Date: 20150721
  Serious: Yes (Other)
  Sender: FDA-Public Use
  Company Number: 2015-10289

PATIENT
  Age: 81 Year
  Sex: Female

DRUGS (1)
  1. EYLEA [Suspect]
     Active Substance: AFLIBERCEPT
     Indication: AGE-RELATED MACULAR DEGENERATION
     Route: 031
     Dates: start: 20140917

REACTIONS (3)
  - Intraocular pressure increased [None]
  - Eye irritation [None]
  - Blindness transient [None]

NARRATIVE: CASE EVENT DATE: 2014
